FAERS Safety Report 21206027 (Version 1)
Quarter: 2022Q3

REPORT INFORMATION
  Report Type: Spontaneous
  Country: US (occurrence: None)
  Receive Date: 20220811
  Receipt Date: 20220811
  Transmission Date: 20221027
  Serious: Yes (Other)
  Sender: FDA-Public Use
  Company Number: None

PATIENT
  Age: 76 Year
  Sex: Female

DRUGS (1)
  1. PAXLOVID [Suspect]
     Active Substance: NIRMATRELVIR\RITONAVIR
     Indication: Product used for unknown indication
     Dosage: FREQUENCY : TWICE A DAY;?
     Route: 048
     Dates: start: 20220809, end: 20220810

REACTIONS (5)
  - Pharyngeal swelling [None]
  - Dyspnoea [None]
  - Lip swelling [None]
  - Haematochezia [None]
  - Therapy cessation [None]

NARRATIVE: CASE EVENT DATE: 20220810
